FAERS Safety Report 22062137 (Version 1)
Quarter: 2023Q1

REPORT INFORMATION
  Report Type: Report from Study
  Country: US (occurrence: US)
  Receive Date: 20230304
  Receipt Date: 20230304
  Transmission Date: 20230418
  Serious: Yes (Hospitalization)
  Sender: FDA-Public Use
  Company Number: US-GBT-020543

PATIENT
  Age: 17 Year
  Sex: Female

DRUGS (5)
  1. OXBRYTA [Suspect]
     Active Substance: VOXELOTOR
     Indication: Anaemia
     Dates: start: 20200609
  2. VITAMIN D3 [Concomitant]
     Active Substance: CHOLECALCIFEROL
     Indication: Vitamin D deficiency
     Dosage: 1000 UNITS
     Route: 048
     Dates: start: 20140214
  3. folic acid (FOLVITE) [Concomitant]
     Indication: Sickle cell disease
     Route: 050
     Dates: start: 20110927
  4. oxyCODONE IR (Roxicodone) [Concomitant]
     Indication: Sickle cell disease
     Dosage: TIME INTERVAL: AS NECESSARY
     Route: 048
     Dates: start: 20181016
  5. HYDROXYUREA [Concomitant]
     Active Substance: HYDROXYUREA
     Indication: Sickle cell disease
     Route: 048
     Dates: start: 20191029

REACTIONS (2)
  - Sickle cell anaemia with crisis [Recovered/Resolved]
  - Headache [Recovered/Resolved]

NARRATIVE: CASE EVENT DATE: 20230216
